FAERS Safety Report 9352782 (Version 1)
Quarter: 2013Q2

REPORT INFORMATION
  Report Type: Spontaneous
  Country: US (occurrence: None)
  Receive Date: 20130614
  Receipt Date: 20130614
  Transmission Date: 20140414
  Serious: Yes (Life-Threatening)
  Sender: FDA-Public Use
  Company Number: None

PATIENT
  Age: 58 Year
  Sex: Female
  Weight: 65.77 kg

DRUGS (1)
  1. MUCUS RELIEF DM [Suspect]
     Indication: NASOPHARYNGITIS
     Dosage: 1
     Route: 048
     Dates: start: 20130603, end: 20130603

REACTIONS (3)
  - Feeling drunk [None]
  - Dizziness [None]
  - Disturbance in attention [None]
